FAERS Safety Report 8991973 (Version 1)
Quarter: 2012Q4

REPORT INFORMATION
  Report Type: 
  Country: US (occurrence: US)
  Receive Date: 20121231
  Receipt Date: 20121231
  Transmission Date: 20130627
  Serious: Yes (Other)
  Sender: FDA-Public Use
  Company Number: US-ASTELLAS-2012US012788

PATIENT
  Age: 52 Year
  Sex: Male

DRUGS (1)
  1. VESICARE [Suspect]
     Indication: PRODUCT USED FOR UNKNOWN INDICATION
     Dosage: 5 mg, UID/QD
     Route: 065
     Dates: start: 201212

REACTIONS (1)
  - Blood glucose increased [Unknown]
